FAERS Safety Report 8914561 (Version 1)
Quarter: 2012Q4

REPORT INFORMATION
  Report Type: 
  Country: IE (occurrence: IE)
  Receive Date: 20121119
  Receipt Date: 20121119
  Transmission Date: 20130627
  Serious: Yes (Other)
  Sender: FDA-Public Use
  Company Number: IE-PFIZER INC-2012282323

PATIENT
  Age: 68 Year
  Sex: Male

DRUGS (3)
  1. CHAMPIX [Suspect]
     Indication: SMOKING CESSATION THERAPY
     Dosage: UNK
     Dates: start: 200702
  2. SPIRIVA [Concomitant]
     Dosage: UNK
  3. LIPITOR [Concomitant]
     Dosage: UNK

REACTIONS (2)
  - Dependence [Unknown]
  - Therapeutic response unexpected [Unknown]
